FAERS Safety Report 10176109 (Version 1)
Quarter: 2014Q2

REPORT INFORMATION
  Report Type: Spontaneous
  Country: US (occurrence: None)
  Receive Date: 20140515
  Receipt Date: 20140515
  Transmission Date: 20141212
  Serious: No
  Sender: FDA-Public Use
  Company Number: None

PATIENT
  Age: 70 Year
  Sex: Female

DRUGS (13)
  1. AFINITOR [Suspect]
     Indication: PRODUCT USED FOR UNKNOWN INDICATION
     Route: 048
     Dates: start: 20140221
  2. VITAMIN C [Concomitant]
  3. CALCIUM D [Concomitant]
  4. ALLEGRA [Concomitant]
  5. ZOLOFT [Concomitant]
  6. MAGNESIUM [Concomitant]
  7. CARVEDILOL [Concomitant]
  8. METHIMAZOLE [Concomitant]
  9. SPIRONOLACTONE [Concomitant]
  10. BABY ASPIRIN (COATED) [Concomitant]
  11. CERTALINA [Concomitant]
  12. CO Q10 [Concomitant]
  13. COREG [Concomitant]

REACTIONS (3)
  - Epistaxis [None]
  - Fatigue [None]
  - Feeling cold [None]
